FAERS Safety Report 5281789-9 (Version None)
Quarter: 2007Q1

REPORT INFORMATION
  Report Type: 
  Country: None (occurrence: None)
  Receive Date: 20070330
  Receipt Date: 20070319
  Transmission Date: 20070707
  Serious: Yes (Hospitalization)
  Sender: FDA-Public Use
  Company Number: FR-ROCHE-485493

PATIENT
  Age: 90 Year
  Sex: Female

DRUGS (4)
  1. ROCEPHIN [Suspect]
     Indication: PROTEUS INFECTION
     Route: 030
     Dates: start: 20061101
  2. OFLOCET [Concomitant]
     Indication: PROTEUS INFECTION
     Route: 048
     Dates: start: 20061101
  3. LEVOTHYROXINE SODIUM [Concomitant]
     Route: 048
  4. DESLORATADINE [Concomitant]
     Dosage: DOSAGE REGIMEN REPORTED AS ONE DOSE PER DAY.
     Route: 048

REACTIONS (1)
  - RASH PUSTULAR [None]
